FAERS Safety Report 7687468-2 (Version None)
Quarter: 2011Q3

REPORT INFORMATION
  Report Type: 
  Country: None (occurrence: None)
  Receive Date: 20110816
  Receipt Date: 20110329
  Transmission Date: 20111222
  Serious: Yes (Death, Hospitalization)
  Sender: FDA-Public Use
  Company Number: GB-BRISTOL-MYERS SQUIBB COMPANY-14105001

PATIENT
  Age: 73 Year
  Sex: Male

DRUGS (11)
  1. BISOPROLOL FUMARATE [Concomitant]
     Dates: start: 20080202, end: 20080208
  2. VITAMIN K TAB [Concomitant]
     Dates: start: 20080202, end: 20080208
  3. FUROSEMIDE [Concomitant]
     Dates: start: 20080203, end: 20080203
  4. IPILIMUMAB [Suspect]
     Indication: MALIGNANT MELANOMA
     Route: 042
     Dates: start: 20071214, end: 20080215
  5. WARFARIN SODIUM [Concomitant]
  6. SIMVASTATIN [Concomitant]
  7. LISINOPRIL [Concomitant]
     Dosage: 06FEB08:07FEB2008
     Dates: start: 19990101, end: 20080303
  8. DIGOXIN [Concomitant]
     Dosage: 02FEB2008:08FEB2008
     Dates: start: 19990101, end: 20080303
  9. AMLODIPINE [Concomitant]
     Dates: start: 19990101, end: 20080213
  10. CEFTRIAXONE [Concomitant]
     Dates: start: 20080201, end: 20080205
  11. DACARBAZINE [Suspect]
     Indication: MALIGNANT MELANOMA
     Route: 042
     Dates: start: 20071214, end: 20080215

REACTIONS (7)
  - RENAL FAILURE ACUTE [None]
  - CONFUSIONAL STATE [None]
  - COAGULOPATHY [None]
  - HYPOTENSION [None]
  - RASH [None]
  - LETHARGY [None]
  - NEOPLASM MALIGNANT [None]
